FAERS Safety Report 24153395 (Version 1)
Quarter: 2024Q3

REPORT INFORMATION
  Report Type: Spontaneous
  Country: US (occurrence: US)
  Receive Date: 20240730
  Receipt Date: 20240730
  Transmission Date: 20241016
  Serious: No
  Sender: BIOGEN
  Company Number: US-BIOGEN-2022BI01125786

PATIENT
  Age: 50 Year
  Sex: Female

DRUGS (7)
  1. VUMERITY [Suspect]
     Active Substance: DIROXIMEL FUMARATE
     Indication: Multiple sclerosis
     Dosage: STARTING DOSE
     Route: 050
     Dates: start: 20220505
  2. VUMERITY [Suspect]
     Active Substance: DIROXIMEL FUMARATE
     Dosage: MAINTENANCE DOSE
     Route: 050
     Dates: start: 202205
  3. VUMERITY [Suspect]
     Active Substance: DIROXIMEL FUMARATE
     Dosage: PAST REGIMEN
     Route: 050
     Dates: start: 20210513
  4. ALENDRONATE SODIUM [Concomitant]
     Active Substance: ALENDRONATE SODIUM
     Route: 050
  5. NEXIUM [Concomitant]
     Active Substance: ESOMEPRAZOLE MAGNESIUM
     Route: 050
  6. TRIAMTERENE/HYDROCHLOROTH [Concomitant]
     Route: 050
  7. VITAMIN D2 [Concomitant]
     Active Substance: ERGOCALCIFEROL
     Route: 050

REACTIONS (12)
  - Product dose omission issue [Unknown]
  - Nasopharyngitis [Not Recovered/Not Resolved]
  - Gastrointestinal disorder [Unknown]
  - Sensation of foreign body [Unknown]
  - Oesophageal spasm [Unknown]
  - Memory impairment [Unknown]
  - Confusional state [Unknown]
  - Cognitive disorder [Unknown]
  - Flushing [Not Recovered/Not Resolved]
  - Abdominal pain upper [Unknown]
  - Dyspepsia [Unknown]
  - Diarrhoea [Unknown]

NARRATIVE: CASE EVENT DATE: 20220501
